FAERS Safety Report 8935875 (Version 2)
Quarter: 2012Q4

REPORT INFORMATION
  Report Type: Report from Study
  Country: IT (occurrence: IT)
  Receive Date: 20121130
  Receipt Date: 20121214
  Transmission Date: 20130627
  Serious: Yes (Death, Other)
  Sender: FDA-Public Use
  Company Number: IT-CELGENEUS-083-21880-12090238

PATIENT
  Age: 86 Year
  Sex: Female

DRUGS (1)
  1. REVLIMID [Suspect]
     Indication: 5Q MINUS MDS
     Dosage: 5 Milligram
     Route: 048
     Dates: start: 20081201, end: 20100414

REACTIONS (2)
  - Death [Fatal]
  - Myelodysplastic syndrome [Unknown]
